FAERS Safety Report 10342229 (Version 1)
Quarter: 2014Q3

REPORT INFORMATION
  Report Type: Spontaneous
  Country: US (occurrence: None)
  Receive Date: 20140724
  Receipt Date: 20140724
  Transmission Date: 20150326
  Serious: Yes (Hospitalization)
  Sender: FDA-Public Use
  Company Number: None

PATIENT

DRUGS (8)
  1. LORAZEPAM. [Suspect]
     Active Substance: LORAZEPAM
     Indication: ALCOHOL WITHDRAWAL SYNDROME
     Dosage: 0.5MG/HR TITRATE TO RASS-2, CONTINUOUS, INTRAVENOUS
     Route: 042
     Dates: start: 20140611, end: 20140714
  2. CHLORDIAZEPOXID [Suspect]
     Active Substance: CHLORDIAZEPOXIDE
     Indication: ALCOHOL WITHDRAWAL SYNDROME
     Route: 048
     Dates: start: 20140612, end: 20140612
  3. ZOSYN [Concomitant]
     Active Substance: PIPERACILLIN SODIUM\TAZOBACTAM SODIUM
  4. ASPIRIN. [Concomitant]
     Active Substance: ASPIRIN
  5. MAGNESIUM SULFATE [Concomitant]
     Active Substance: MAGNESIUM SULFATE
  6. MULTIVITAMINS/FOLIC ACID/THIAMINE [Concomitant]
  7. PANTOPRAZOLE [Concomitant]
     Active Substance: PANTOPRAZOLE SODIUM
  8. NAC1 [Concomitant]

REACTIONS (9)
  - Bradycardia [None]
  - Hypoxia [None]
  - Atelectasis [None]
  - Tachypnoea [None]
  - Tachycardia [None]
  - Unresponsive to stimuli [None]
  - Respiratory distress [None]
  - Lethargy [None]
  - Metabolic encephalopathy [None]

NARRATIVE: CASE EVENT DATE: 20140613
